FAERS Safety Report 25579585 (Version 1)
Quarter: 2025Q3

REPORT INFORMATION
  Report Type: Spontaneous
  Country: US (occurrence: US)
  Receive Date: 20250718
  Receipt Date: 20250718
  Transmission Date: 20251020
  Serious: No
  Sender: NOVO NORDISK
  Company Number: US-NOVOPROD-1273613

PATIENT
  Sex: Female

DRUGS (3)
  1. WEGOVY [Suspect]
     Active Substance: SEMAGLUTIDE
     Indication: Polycystic ovarian syndrome
     Dosage: 0.50 MG, QW
     Route: 058
     Dates: start: 20230930
  2. WEGOVY [Suspect]
     Active Substance: SEMAGLUTIDE
     Indication: Body mass index increased
  3. WEGOVY [Suspect]
     Active Substance: SEMAGLUTIDE
     Indication: Weight control

REACTIONS (5)
  - Increased appetite [Not Recovered/Not Resolved]
  - Weight increased [Not Recovered/Not Resolved]
  - Constipation [Not Recovered/Not Resolved]
  - Adverse drug reaction [Not Recovered/Not Resolved]
  - Expired product administered [Not Recovered/Not Resolved]
